FAERS Safety Report 24401671 (Version 1)
Quarter: 2024Q4

REPORT INFORMATION
  Report Type: Spontaneous
  Country: PL (occurrence: PL)
  Receive Date: 20241007
  Receipt Date: 20241007
  Transmission Date: 20250115
  Serious: Yes (Life-Threatening)
  Sender: AUROBINDO
  Company Number: PL-URPL-1-2799-2020

PATIENT
  Age: 69 Year
  Sex: Female
  Weight: 71 kg

DRUGS (1)
  1. CEFUROXIME [Suspect]
     Active Substance: CEFUROXIME
     Indication: Prophylaxis
     Dosage: 15 GRAM
     Route: 042
     Dates: start: 20200221, end: 20200221

REACTIONS (4)
  - Blood pressure decreased [Recovered/Resolved]
  - Oxygen saturation [Recovered/Resolved]
  - Erythema [Recovered/Resolved]
  - PCO2 decreased [Recovered/Resolved]

NARRATIVE: CASE EVENT DATE: 20200221
